FAERS Safety Report 9862084 (Version 1)
Quarter: 2014Q1

REPORT INFORMATION
  Report Type: Spontaneous
  Country: IN (occurrence: IN)
  Receive Date: 20140203
  Receipt Date: 20140203
  Transmission Date: 20141002
  Serious: Yes (Death, Other)
  Sender: FDA-Public Use
  Company Number: IN-ASTRAZENECA-2014SE06466

PATIENT
  Age: 55 Year
  Sex: Female

DRUGS (2)
  1. BUPIVACAINE [Suspect]
     Indication: SPINAL ANAESTHESIA
     Route: 039
  2. TRANEXAMIC ACID [Suspect]
     Route: 037

REACTIONS (5)
  - Wrong drug administered [Fatal]
  - Myoclonus [Unknown]
  - Hypotension [Unknown]
  - Loss of consciousness [Unknown]
  - Ventricular fibrillation [Fatal]
